FAERS Safety Report 9454170 (Version 2)
Quarter: 2013Q3

REPORT INFORMATION
  Report Type: Report from Study
  Country: US (occurrence: US)
  Receive Date: 20130812
  Receipt Date: 20130917
  Transmission Date: 20140515
  Serious: Yes (Death)
  Sender: FDA-Public Use
  Company Number: US-ACTELION-A-NJ2013-86695

PATIENT
  Age: 60 Year
  Sex: Female

DRUGS (4)
  1. VELETRI [Suspect]
     Indication: PULMONARY ARTERIAL HYPERTENSION
     Dosage: 71.7 NG/KG, PER MIN
     Route: 042
     Dates: start: 20130726, end: 20130730
  2. TRACLEER [Suspect]
     Indication: PULMONARY ARTERIAL HYPERTENSION
     Dosage: UNK
     Route: 048
     Dates: end: 20130730
  3. SILDENAFIL [Concomitant]
  4. FUROSEMIDE [Concomitant]

REACTIONS (1)
  - Death [Fatal]
